FAERS Safety Report 21513499 (Version 1)
Quarter: 2022Q4

REPORT INFORMATION
  Report Type: Spontaneous
  Country: US (occurrence: None)
  Receive Date: 20221026
  Receipt Date: 20221026
  Transmission Date: 20230112
  Serious: Yes (Other)
  Sender: FDA-Public Use
  Company Number: None

PATIENT
  Age: 24 Year
  Sex: Female

DRUGS (1)
  1. QWO [Suspect]
     Active Substance: COLLAGENASE CLOSTRIDIUM HISTOLYTICUM-AAES

REACTIONS (5)
  - Skin discolouration [None]
  - Atrophy [None]
  - Skin atrophy [None]
  - Cellulite [None]
  - Mental disorder [None]

NARRATIVE: CASE EVENT DATE: 20210601
